FAERS Safety Report 12975818 (Version 1)
Quarter: 2016Q4

REPORT INFORMATION
  Report Type: Spontaneous
  Country: FR (occurrence: FR)
  Receive Date: 20161125
  Receipt Date: 20161125
  Transmission Date: 20170207
  Serious: Yes (Hospitalization)
  Sender: FDA-Public Use
  Company Number: FR-009507513-1611FRA008279

PATIENT
  Age: 61 Year
  Sex: Female

DRUGS (9)
  1. DIPROSONE [Suspect]
     Active Substance: BETAMETHASONE DIPROPIONATE
     Indication: SKIN BACTERIAL INFECTION
     Dosage: 1 DF, QD
     Route: 003
     Dates: start: 20160913, end: 20160917
  2. FUCIDINE (FUSIDIC ACID) [Suspect]
     Active Substance: FUSIDIC ACID
     Indication: SKIN BACTERIAL INFECTION
     Dosage: 24 DF(1DF, PER HOUR)
     Route: 003
     Dates: start: 20160913, end: 20160917
  3. XYZALL [Concomitant]
     Active Substance: LEVOCETIRIZINE DIHYDROCHLORIDE
     Dosage: 1 DF, QD
     Route: 048
     Dates: start: 20160913, end: 20160922
  4. PYOSTACINE [Suspect]
     Active Substance: PRISTINAMYCIN
     Indication: SKIN BACTERIAL INFECTION
     Dosage: 2G (1G, BID)
     Route: 048
     Dates: start: 20160916, end: 20160920
  5. KESTIN [Concomitant]
     Active Substance: EBASTINE
     Dosage: 1 DF, QD
     Route: 048
     Dates: start: 20160922, end: 20160929
  6. CYTEAL [Suspect]
     Active Substance: CHLORHEXIDINE GLUCONATE\CHLOROCRESOL\HEXAMIDINE DIISETHIONATE
     Indication: SKIN BACTERIAL INFECTION
     Dosage: 1 DF, QD
     Route: 003
     Dates: start: 20160913, end: 20160917
  7. BISEPTINE [Suspect]
     Active Substance: BENZALKONIUM CHLORIDE\BENZYL ALCOHOL\CHLORHEXIDINE
     Indication: SKIN BACTERIAL INFECTION
     Dosage: 1 DF, QD
     Route: 003
     Dates: start: 20160913, end: 20160917
  8. AMOXICILLIN. [Concomitant]
     Active Substance: AMOXICILLIN
     Dosage: 1 G, QD
     Route: 048
     Dates: start: 20160920, end: 20160922
  9. PREDNISOLONE. [Concomitant]
     Active Substance: PREDNISOLONE
     Dosage: UNK
     Route: 048
     Dates: start: 20160920, end: 20160929

REACTIONS (1)
  - Eczema [Recovering/Resolving]

NARRATIVE: CASE EVENT DATE: 20160913
